FAERS Safety Report 25831356 (Version 1)
Quarter: 2025Q3

REPORT INFORMATION
  Report Type: Spontaneous
  Country: US (occurrence: None)
  Receive Date: 20250919
  Receipt Date: 20250919
  Transmission Date: 20251021
  Serious: No
  Sender: FDA-CTU
  Company Number: None

PATIENT
  Age: 67 Year
  Sex: Male
  Weight: 112.85 kg

DRUGS (10)
  1. MAVYRET [Suspect]
     Active Substance: GLECAPREVIR\PIBRENTASVIR
     Indication: Hepatitis C
     Dosage: 3 TABS DAILY ORAL
     Route: 048
     Dates: start: 20250829, end: 20250913
  2. Allopurinol 100mg Tabs [Concomitant]
  3. amlodipine-Benaz 5/20n1g caps [Concomitant]
  4. Aspirin 81 mg EC low Dose Tabs [Concomitant]
  5. Atorvastatin 20mg Tabs [Concomitant]
  6. gabapentin 600 mg Tabs [Concomitant]
  7. HYDROCHLOROTHIAZIDE [Concomitant]
     Active Substance: HYDROCHLOROTHIAZIDE
  8. LISINOPRIL [Concomitant]
     Active Substance: LISINOPRIL
  9. oxycodone/acetaminophen 10-325mg Tabs [Concomitant]
  10. Sildenafil 100mg tab [Concomitant]

REACTIONS (3)
  - Illness [None]
  - Headache [None]
  - Therapy cessation [None]

NARRATIVE: CASE EVENT DATE: 20250901
